FAERS Safety Report 5638844-0 (Version None)
Quarter: 2008Q1

REPORT INFORMATION
  Report Type: 
  Country: None (occurrence: None)
  Receive Date: 20080222
  Receipt Date: 20080222
  Transmission Date: 20080703
  Serious: Yes (Hospitalization)
  Sender: FDA-Public Use
  Company Number: None

PATIENT
  Sex: Male
  Weight: 61.6892 kg

DRUGS (4)
  1. CISPLATIN [Suspect]
     Indication: NEOPLASM MALIGNANT
     Dosage: CISPLATIN X5 WKLY FOR 7 WEEKS IV
     Route: 042
     Dates: start: 20071129, end: 20080116
  2. CARBOPLATIN [Suspect]
     Dosage: CARBOX2 WKLY 7 WKS IV
     Route: 042
  3. PANITUMUMAB FOR 7 CYCLES [Suspect]
     Dosage: PANITUMUMAB WEEKLY FOR 7 WKS IV
     Route: 042
     Dates: start: 20071129, end: 20080116
  4. RADIATION THERAPY [Concomitant]

REACTIONS (4)
  - ATAXIA [None]
  - DIZZINESS [None]
  - GASTRITIS [None]
  - VESTIBULITIS [None]
